FAERS Safety Report 12761074 (Version 2)
Quarter: 2016Q4

REPORT INFORMATION
  Report Type: Spontaneous
  Country: CN (occurrence: CN)
  Receive Date: 20160920
  Receipt Date: 20161005
  Transmission Date: 20170207
  Serious: No
  Sender: FDA-Public Use
  Company Number: CN-BRISTOL-MYERS SQUIBB COMPANY-BMS-2016-076083

PATIENT
  Age: 29 Year
  Sex: Female
  Weight: 40 kg

DRUGS (3)
  1. EFAVIRENZ [Suspect]
     Active Substance: EFAVIRENZ
     Indication: ACQUIRED IMMUNODEFICIENCY SYNDROME
     Dosage: 0.6 G, QD
     Route: 048
     Dates: start: 20160622, end: 20160706
  2. TENOFOVIR [Suspect]
     Active Substance: TENOFOVIR
     Indication: ACQUIRED IMMUNODEFICIENCY SYNDROME
     Dosage: UNK
     Route: 065
     Dates: start: 20160622
  3. LAMIVUDINE. [Suspect]
     Active Substance: LAMIVUDINE
     Indication: ACQUIRED IMMUNODEFICIENCY SYNDROME
     Dosage: UNK
     Route: 065
     Dates: start: 20160622

REACTIONS (1)
  - Delirium [Recovering/Resolving]

NARRATIVE: CASE EVENT DATE: 20160706
